FAERS Safety Report 7096437-5 (Version None)
Quarter: 2010Q4

REPORT INFORMATION
  Report Type: 
  Country: None (occurrence: None)
  Receive Date: 20101111
  Receipt Date: 20081203
  Transmission Date: 20110411
  Serious: No
  Sender: FDA-Public Use
  Company Number: US-KINGPHARMUSA00001-K200801368

PATIENT
  Sex: Female

DRUGS (3)
  1. ALTACE [Suspect]
     Indication: PROPHYLAXIS
     Dosage: 10 MG, BID
     Route: 048
     Dates: start: 20060101
  2. NORVASC [Concomitant]
     Indication: BLOOD PRESSURE
     Dosage: 5 MG, UNK
     Dates: start: 20081101
  3. CRESTOR [Concomitant]
     Dosage: UNK

REACTIONS (2)
  - BLOOD PRESSURE SYSTOLIC INCREASED [None]
  - DRUG INEFFECTIVE [None]
